FAERS Safety Report 5057306-5 (Version None)
Quarter: 2006Q3

REPORT INFORMATION
  Report Type: 
  Country: None (occurrence: None)
  Receive Date: 20060721
  Receipt Date: 20050727
  Transmission Date: 20061208
  Serious: No
  Sender: FDA-Public Use
  Company Number: S2005US10715

PATIENT
  Age: 61 Year
  Sex: Female

DRUGS (5)
  1. AVANDIA [Suspect]
     Route: 048
  2. VOLTAREN-XR [Suspect]
     Indication: FIBROMYALGIA
     Dosage: 100MG TWICE PER DAY
     Route: 048
     Dates: start: 20050505, end: 20050531
  3. MICRONASE [Suspect]
     Route: 048
  4. TAGAMET [Concomitant]
     Indication: REGURGITATION OF FOOD
  5. TENORMIN [Concomitant]
     Indication: HEART RATE INCREASED

REACTIONS (1)
  - BLOOD GLUCOSE DECREASED [None]
